FAERS Safety Report 7553990-2 (Version None)
Quarter: 2011Q2

REPORT INFORMATION
  Report Type: 
  Country: None (occurrence: None)
  Receive Date: 20110617
  Receipt Date: 20110615
  Transmission Date: 20111010
  Serious: Yes (Other)
  Sender: FDA-Public Use
  Company Number: US-PFIZER INC-2011131976

PATIENT
  Sex: Female
  Weight: 68 kg

DRUGS (1)
  1. CHANTIX [Suspect]
     Indication: SMOKING CESSATION THERAPY
     Dosage: 0.5 MG, DAILY
     Route: 048
     Dates: start: 20110606, end: 20110615

REACTIONS (6)
  - AGITATION [None]
  - FEELING ABNORMAL [None]
  - ANXIETY [None]
  - MOOD SWINGS [None]
  - ABNORMAL BEHAVIOUR [None]
  - ANGER [None]
